FAERS Safety Report 6648208-9 (Version None)
Quarter: 2010Q1

REPORT INFORMATION
  Report Type: 
  Country: None (occurrence: None)
  Receive Date: 20100324
  Receipt Date: 20100317
  Transmission Date: 20100710
  Serious: Yes (Death, Hospitalization)
  Sender: FDA-Public Use
  Company Number: JP-BAYER-201010803BYL

PATIENT
  Age: 67 Year
  Sex: Male
  Weight: 64 kg

DRUGS (19)
  1. NEXAVAR [Suspect]
     Indication: HEPATIC NEOPLASM MALIGNANT
     Dosage: TOTAL DAILY DOSE: 800 MG  UNIT DOSE: 200 MG
     Route: 048
     Dates: start: 20091221, end: 20100205
  2. ASPIRIN [Concomitant]
     Indication: MYOCARDIAL INFARCTION
     Dosage: UNIT DOSE: 100 MG
     Route: 048
     Dates: start: 20091221, end: 20100205
  3. NORVASC [Concomitant]
     Indication: HYPERTENSION
     Route: 048
     Dates: start: 20091221, end: 20100205
  4. CANDESARTAN CILEXETIL [Concomitant]
     Indication: HYPERTENSION
     Route: 048
     Dates: start: 20091221, end: 20100205
  5. PLETAL [Concomitant]
     Indication: MYOCARDIAL INFARCTION
     Route: 048
     Dates: start: 20091221, end: 20100205
  6. ARTIST [Concomitant]
     Indication: HYPERTENSION
     Route: 048
     Dates: start: 20091221, end: 20100205
  7. PARIET [Concomitant]
     Indication: REFLUX OESOPHAGITIS
     Route: 048
     Dates: start: 20091221, end: 20100205
  8. URSO 250 [Concomitant]
     Indication: PROPHYLAXIS
     Route: 048
     Dates: start: 20091221, end: 20100205
  9. GLUCOBAY [Concomitant]
     Indication: DIABETES MELLITUS
     Route: 048
     Dates: start: 20091221, end: 20100205
  10. SLOW-K [Concomitant]
     Indication: HYPOKALAEMIA
     Route: 048
     Dates: start: 20091221, end: 20100205
  11. CALONAL [Concomitant]
     Indication: PYREXIA
     Route: 048
     Dates: start: 20091221, end: 20100205
  12. ULCERLMIN [Concomitant]
     Indication: GASTRITIS PROPHYLAXIS
     Dosage: UNIT DOSE: 90 %
     Route: 048
     Dates: start: 20091221, end: 20100205
  13. MUCOSTA [Concomitant]
     Indication: GASTRITIS PROPHYLAXIS
     Route: 048
     Dates: start: 20091221, end: 20100205
  14. MARZULENE S [Concomitant]
     Indication: GASTRITIS PROPHYLAXIS
     Route: 048
     Dates: start: 20091221, end: 20100205
  15. LAC B [Concomitant]
     Indication: DIARRHOEA
     Route: 048
     Dates: start: 20091221, end: 20100205
  16. ALBUMIN TANNATE [Concomitant]
     Indication: DIARRHOEA
     Route: 048
     Dates: start: 20091221, end: 20100205
  17. GASTROM [Concomitant]
     Indication: GASTRITIS PROPHYLAXIS
     Route: 048
     Dates: start: 20091221, end: 20100205
  18. LASIX [Concomitant]
     Indication: ASCITES
     Route: 041
     Dates: start: 20091221
  19. SOLDACTONE [Concomitant]
     Indication: ASCITES
     Route: 041
     Dates: start: 20091221

REACTIONS (2)
  - GASTROINTESTINAL PERFORATION [None]
  - RESPIRATORY FAILURE [None]
